FAERS Safety Report 7419435-8 (Version None)
Quarter: 2011Q2

REPORT INFORMATION
  Report Type: 
  Country: None (occurrence: None)
  Receive Date: 20110418
  Receipt Date: 20110408
  Transmission Date: 20111010
  Serious: Yes (Other)
  Sender: FDA-Public Use
  Company Number: AR-AMGEN-ARGSP2011013259

PATIENT
  Age: 58 Year
  Sex: Female
  Weight: 70 kg

DRUGS (2)
  1. ENBREL [Suspect]
     Indication: RHEUMATOID ARTHRITIS
     Dosage: 50 MG, QWK
     Route: 058
     Dates: start: 20070101, end: 20100701
  2. METHOTREXATE [Concomitant]
     Dosage: UNK
     Route: 048
     Dates: start: 20070101, end: 20100101

REACTIONS (5)
  - COLITIS [None]
  - ABDOMINAL DISTENSION [None]
  - LIVER DISORDER [None]
  - OEDEMA [None]
  - HYPERTENSION [None]
